FAERS Safety Report 5774210-5 (Version None)
Quarter: 2008Q2

REPORT INFORMATION
  Report Type: 
  Country: None (occurrence: None)
  Receive Date: 20080616
  Receipt Date: 20080610
  Transmission Date: 20081010
  Serious: Yes (Other)
  Sender: FDA-Public Use
  Company Number: US-ASTRAZENECA-2008UW11650

PATIENT
  Age: 77 Year
  Sex: Male
  Weight: 68 kg

DRUGS (9)
  1. CRESTOR [Suspect]
     Indication: BLOOD CHOLESTEROL INCREASED
     Route: 048
     Dates: start: 20080101
  2. GLUCOTROL XL [Concomitant]
  3. METFORMIN HCL [Concomitant]
  4. METOPROLOL [Concomitant]
  5. ASPIRIN [Concomitant]
     Route: 048
  6. PACERON [Concomitant]
  7. NEXIUM [Concomitant]
  8. SPIRIVA [Concomitant]
  9. CENTRUM [Concomitant]

REACTIONS (1)
  - CORONARY ARTERY BYPASS [None]
